FAERS Safety Report 16157683 (Version 1)
Quarter: 2019Q2

REPORT INFORMATION
  Report Type: Spontaneous
  Country: US (occurrence: US)
  Receive Date: 20190228
  Receipt Date: 20190228
  Transmission Date: 20190711
  Serious: Yes (Life-Threatening, Hospitalization)
  Sender: FDA-Public Use
  Company Number: None

PATIENT
  Age: 62 Year
  Sex: Male

DRUGS (1)
  1. WARFARIN [Suspect]
     Active Substance: WARFARIN
     Indication: PULMONARY EMBOLISM
     Route: 048
     Dates: start: 20150727, end: 20190130

REACTIONS (3)
  - Anticoagulation drug level below therapeutic [None]
  - Haemorrhage intracranial [None]
  - Subdural haematoma [None]

NARRATIVE: CASE EVENT DATE: 20181230
